FAERS Safety Report 8519340-X (Version None)
Quarter: 2012Q3

REPORT INFORMATION
  Report Type: 
  Country: None (occurrence: None)
  Receive Date: 20120718
  Receipt Date: 20120705
  Transmission Date: 20120928
  Serious: Yes (Hospitalization)
  Sender: FDA-Public Use
  Company Number: IT-NOVEN-12IT004939

PATIENT
  Sex: Female

DRUGS (5)
  1. TRIAZOLAM [Suspect]
     Indication: DEPRESSION
     Dosage: HALF A BOTTLE
     Route: 048
     Dates: start: 20120622, end: 20120622
  2. TRIAZOLAM [Suspect]
     Dosage: 3 MG, PM
     Route: 048
  3. UNKNOWN [Concomitant]
  4. PAROXETINE [Suspect]
     Dosage: 30 MG, PRN
     Route: 048
  5. PAROXETINE [Suspect]
     Indication: DEPRESSION
     Dosage: 3 BOXES
     Route: 065
     Dates: start: 20120622, end: 20120622

REACTIONS (3)
  - SOPOR [None]
  - INTENTIONAL SELF-INJURY [None]
  - OVERDOSE [None]
